FAERS Safety Report 7524799-0 (Version None)
Quarter: 2011Q2

REPORT INFORMATION
  Report Type: 
  Country: None (occurrence: None)
  Receive Date: 20110606
  Receipt Date: 20110524
  Transmission Date: 20111010
  Serious: Yes (Disabling)
  Sender: FDA-Public Use
  Company Number: NL-AMGEN-NLDSP2011019788

PATIENT
  Age: 67 Year
  Sex: Male
  Weight: 90 kg

DRUGS (13)
  1. SULFASALAZINE [Concomitant]
     Dosage: UNK
  2. ENBREL [Suspect]
     Indication: ANKYLOSING SPONDYLITIS
     Dosage: 50 MG, WEEKLY
     Dates: start: 20110329
  3. TRAMADOL HCL [Concomitant]
     Dosage: UNK
  4. METOPROLOL TARTRATE [Concomitant]
     Dosage: UNK
  5. ENALAPRIL MALEATE [Concomitant]
     Dosage: UNK
  6. LANSOPRAZOL [Concomitant]
     Dosage: UNK
  7. DIOVAN HCT [Concomitant]
     Dosage: UNK
  8. NAPROXEN [Concomitant]
     Dosage: 250 UNK, UNK
  9. ZOPICLONE [Concomitant]
     Dosage: UNK
  10. LOSEC                              /00661201/ [Concomitant]
     Dosage: UNK
  11. TAMSULOSIN HCL [Concomitant]
     Dosage: UNK
  12. PLAVIX [Concomitant]
     Dosage: UNK
  13. VALSARTAN [Concomitant]
     Dosage: UNK

REACTIONS (1)
  - FATIGUE [None]
